FAERS Safety Report 9433331 (Version 4)
Quarter: 2013Q4

REPORT INFORMATION
  Report Type: Spontaneous
  Country: US (occurrence: US)
  Receive Date: 20130731
  Receipt Date: 20131115
  Transmission Date: 20140711
  Serious: Yes (Other)
  Sender: FDA-Public Use
  Company Number: US-009507513-1307USA012724

PATIENT
  Age: 55 Year
  Sex: Male

DRUGS (3)
  1. PEG-INTRON [Suspect]
     Indication: CHRONIC HEPATITIS C
     Dosage: REDIPEN, UNK
     Route: 065
     Dates: start: 20130712, end: 20131027
  2. REBETOL [Suspect]
     Indication: CHRONIC HEPATITIS C
     Dosage: UNK
     Route: 048
     Dates: start: 20130712, end: 20131027
  3. VICTRELIS [Suspect]
     Indication: CHRONIC HEPATITIS C
     Dosage: UNK
     Route: 048
     Dates: start: 20130809, end: 20131027

REACTIONS (31)
  - Loss of consciousness [Unknown]
  - Nausea [Unknown]
  - Myalgia [Unknown]
  - Injection site erythema [Unknown]
  - Migraine [Unknown]
  - Toothache [Unknown]
  - Tooth abscess [Unknown]
  - Dizziness [Unknown]
  - Headache [Unknown]
  - Arthralgia [Unknown]
  - Tooth abscess [Unknown]
  - Toothache [Unknown]
  - Abdominal pain upper [Recovered/Resolved]
  - Throat irritation [Recovered/Resolved]
  - Cough [Recovered/Resolved]
  - Dysgeusia [Unknown]
  - Vision blurred [Recovered/Resolved]
  - Dizziness [Unknown]
  - Coccidioidomycosis [Unknown]
  - Injection site erythema [Recovered/Resolved]
  - Hepatitis C [Unknown]
  - Rash pruritic [Not Recovered/Not Resolved]
  - Migraine [Not Recovered/Not Resolved]
  - Fall [Unknown]
  - Swelling [Unknown]
  - Back pain [Not Recovered/Not Resolved]
  - Proctalgia [Not Recovered/Not Resolved]
  - Rectal discharge [Not Recovered/Not Resolved]
  - Rectal haemorrhage [Unknown]
  - Disturbance in attention [Recovering/Resolving]
  - Asthenia [Recovering/Resolving]
